FAERS Safety Report 8441397-5 (Version None)
Quarter: 2012Q2

REPORT INFORMATION
  Report Type: 
  Country: None (occurrence: None)
  Receive Date: 20120615
  Receipt Date: 20110825
  Transmission Date: 20120825
  Serious: No
  Sender: FDA-Public Use
  Company Number: US-NOVEN-11US003065

PATIENT
  Sex: Male
  Weight: 25.397 kg

DRUGS (3)
  1. DAYTRANA [Suspect]
     Indication: ATTENTION DEFICIT/HYPERACTIVITY DISORDER
     Dosage: 20 MG, QD
     Route: 062
     Dates: start: 20100101
  2. RISPERDAL [Concomitant]
     Indication: AFFECTIVE DISORDER
     Dosage: 1.5 ML, UNK
     Route: 048
     Dates: start: 20100101
  3. CLONIDINE [Concomitant]
     Indication: INSOMNIA
     Dosage: .2 MG, UNK
     Route: 048
     Dates: start: 20100101

REACTIONS (5)
  - INCORRECT DRUG ADMINISTRATION DURATION [None]
  - PRODUCT QUALITY ISSUE [None]
  - DRUG INEFFECTIVE [None]
  - DRUG ADMINISTRATION ERROR [None]
  - WRONG TECHNIQUE IN DRUG USAGE PROCESS [None]
